FAERS Safety Report 6725307-4 (Version None)
Quarter: 2010Q2

REPORT INFORMATION
  Report Type: 
  Country: None (occurrence: None)
  Receive Date: 20100512
  Receipt Date: 20100427
  Transmission Date: 20101027
  Serious: No
  Sender: FDA-Public Use
  Company Number: B0651508A

PATIENT
  Age: 32 Year
  Sex: Female

DRUGS (7)
  1. SALBUTAMOL SULPHATE NEBULISER SOLUTION (GENERIC) (ALBUTEROL SULFATE) [Suspect]
     Indication: WHEEZING
  2. DIGOXIN [Suspect]
     Indication: TACHYCARDIA
  3. ASPIRIN [Suspect]
  4. FRUSEMIDE (FORMULATION UNKNOWN) (FRUSEMIDE) [Suspect]
     Dosage: INTRAVENOUS
     Route: 042
  5. ENOXEPARIN (FORMULATION UNKNOWN) (ENOXEPARIN) [Suspect]
  6. METOPROLOL TARTRATE [Suspect]
     Dosage: 12.5 MG / TWICE PER DAY
  7. INTRAVENOUS FLUID(S) (FORMULATION UNKNOWN) (INTRAVENOUS FLUID(S) [Suspect]
     Dosage: INTRAVENOUS
     Route: 042

REACTIONS (9)
  - DRUG EXPOSURE DURING PREGNANCY [None]
  - HELLP SYNDROME [None]
  - INTRA-UTERINE DEATH [None]
  - LEFT ATRIAL DILATATION [None]
  - MITRAL VALVE INCOMPETENCE [None]
  - MITRAL VALVE STENOSIS [None]
  - PRE-ECLAMPSIA [None]
  - PULMONARY HYPERTENSION [None]
  - PULMONARY OEDEMA [None]
